FAERS Safety Report 19798374 (Version 4)
Quarter: 2024Q1

REPORT INFORMATION
  Report Type: Spontaneous
  Country: US (occurrence: US)
  Receive Date: 20210907
  Receipt Date: 20240222
  Transmission Date: 20240410
  Serious: No
  Sender: FDA-Public Use
  Company Number: US-PFIZER INC-2021386202

PATIENT
  Age: 74 Year
  Sex: Female
  Weight: 68.04 kg

DRUGS (2)
  1. XELJANZ XR [Suspect]
     Active Substance: TOFACITINIB CITRATE
     Indication: Pain in extremity
     Dosage: 11 MG, 1X/DAY (TAKE ONE A DAY IN THE MORNING)
  2. XELJANZ XR [Suspect]
     Active Substance: TOFACITINIB CITRATE
     Indication: Arthritis

REACTIONS (6)
  - Dermal cyst [Unknown]
  - Pain [Unknown]
  - Arthralgia [Unknown]
  - Loss of personal independence in daily activities [Unknown]
  - Feeling drunk [Unknown]
  - Off label use [Unknown]

NARRATIVE: CASE EVENT DATE: 20210412
